FAERS Safety Report 19788331 (Version 1)
Quarter: 2021Q3

REPORT INFORMATION
  Report Type: Report from Study
  Country: US (occurrence: US)
  Receive Date: 20210903
  Receipt Date: 20210903
  Transmission Date: 20211014
  Serious: Yes (Other)
  Sender: FDA-Public Use
  Company Number: US-TEVA-2021-US-1947451

PATIENT
  Age: 44 Year
  Sex: Female

DRUGS (1)
  1. COPAXONE [Suspect]
     Active Substance: GLATIRAMER ACETATE
     Dosage: FORM STRENGTH: UNKNOWN
     Route: 065

REACTIONS (10)
  - Dyspnoea [Unknown]
  - Intracardiac thrombus [Unknown]
  - Goitre [Unknown]
  - Breast cancer [Unknown]
  - Basedow^s disease [Unknown]
  - Breast cancer stage IV [Unknown]
  - Depression [Unknown]
  - Injection site discolouration [Unknown]
  - Loss of consciousness [Unknown]
  - Injection site atrophy [Unknown]

NARRATIVE: CASE EVENT DATE: 2017
